FAERS Safety Report 15223403 (Version 2)
Quarter: 2018Q3

REPORT INFORMATION
  Report Type: Report from Study
  Country: TR (occurrence: TR)
  Receive Date: 20180731
  Receipt Date: 20180822
  Transmission Date: 20181010
  Serious: Yes (Hospitalization)
  Sender: FDA-Public Use
  Company Number: TR-SA-2018SA114834

PATIENT
  Age: 16 Year
  Sex: Female
  Weight: 61 kg

DRUGS (6)
  1. GYNOFERON [Concomitant]
     Dosage: 1 DF,QD
     Route: 048
     Dates: start: 20180101
  2. BLINDED NO STUDY DRUG GIVEN [Suspect]
     Active Substance: INVESTIGATIONAL PRODUCT
     Indication: MULTIPLE SCLEROSIS RELAPSE
     Dosage: 7 MG,QD
     Route: 048
     Dates: start: 20170105, end: 20180516
  3. BLINDED TERIFLUNOMIDE [Suspect]
     Active Substance: TERIFLUNOMIDE
     Indication: MULTIPLE SCLEROSIS RELAPSE
     Dosage: 7 MG,QD
     Route: 048
     Dates: start: 20170105, end: 20180516
  4. BLINDED TERIFLUNOMIDE [Suspect]
     Active Substance: TERIFLUNOMIDE
     Indication: MULTIPLE SCLEROSIS RELAPSE
     Dosage: 7 MG,QD
     Route: 048
     Dates: start: 20170105, end: 20180516
  5. DEVIT 3 [Concomitant]
     Indication: PROPHYLAXIS
     Dosage: 3 DF,QD
     Route: 048
     Dates: start: 20180101
  6. BLINDED PLACEBO [Suspect]
     Active Substance: INVESTIGATIONAL PRODUCT
     Indication: MULTIPLE SCLEROSIS RELAPSE
     Dosage: 7 MG,QD
     Route: 048
     Dates: start: 20170105, end: 20180516

REACTIONS (1)
  - Pancreatitis [Recovering/Resolving]

NARRATIVE: CASE EVENT DATE: 20180410
